FAERS Safety Report 7282766-9 (Version None)
Quarter: 2011Q1

REPORT INFORMATION
  Report Type: 
  Country: None (occurrence: None)
  Receive Date: 20110209
  Receipt Date: 20100806
  Transmission Date: 20110831
  Serious: Yes (Other)
  Sender: FDA-Public Use
  Company Number: US-BAYER-201014064NA

PATIENT
  Sex: Female
  Weight: 83.9 kg

DRUGS (8)
  1. LEVOXYL [Concomitant]
     Indication: HYPOTHYROIDISM
     Dosage: 150 MCG/24HR, UNK
     Dates: start: 20040101
  2. ADVIL LIQUI-GELS [Concomitant]
  3. YASMIN [Suspect]
     Indication: MENORRHAGIA
  4. YAZ [Suspect]
     Indication: MENORRHAGIA
  5. YAZ [Suspect]
     Indication: ORAL CONTRACEPTION
     Dosage: UNK
     Dates: start: 20071001, end: 20080101
  6. ATENOLOL [Concomitant]
     Indication: TACHYCARDIA
     Dosage: 12.5 MG, QD
     Dates: start: 20070410
  7. YASMIN [Suspect]
     Indication: ORAL CONTRACEPTION
     Dosage: UNK
     Dates: start: 20070101, end: 20071001
  8. UNCODEABLE ^UNCLASSIFIABLE^ [Concomitant]
     Dosage: UNK
     Dates: start: 20070101

REACTIONS (5)
  - CHOLECYSTITIS CHRONIC [None]
  - GALLBLADDER CHOLESTEROLOSIS [None]
  - ABDOMINAL PAIN [None]
  - BILIARY DYSKINESIA [None]
  - LYMPHADENOPATHY [None]
